FAERS Safety Report 14298407 (Version 2)
Quarter: 2018Q1

REPORT INFORMATION
  Report Type: Spontaneous
  Country: US (occurrence: US)
  Receive Date: 20171218
  Receipt Date: 20180221
  Transmission Date: 20180509
  Serious: Yes (Other)
  Sender: FDA-Public Use
  Company Number: US-BAYER-2017-240798

PATIENT
  Age: 28 Year
  Sex: Female
  Weight: 78.46 kg

DRUGS (1)
  1. KYLEENA [Suspect]
     Active Substance: LEVONORGESTREL
     Indication: CONTRACEPTION
     Dosage: 17.5 MCG/24HR, CONT
     Route: 015
     Dates: start: 20171114, end: 20171130

REACTIONS (4)
  - Uterine perforation [None]
  - Procedural pain [None]
  - Arthralgia [None]
  - Abdominal pain [None]

NARRATIVE: CASE EVENT DATE: 20171114
